FAERS Safety Report 4609909-7 (Version None)
Quarter: 2005Q1

REPORT INFORMATION
  Report Type: 
  Country: None (occurrence: None)
  Receive Date: 20050314
  Receipt Date: 20050314
  Transmission Date: 20050727
  Serious: Yes (Hospitalization)
  Sender: FDA-Public Use
  Company Number: None

PATIENT
  Age: 58 Year
  Sex: Male

DRUGS (9)
  1. METHADONE HCL [Suspect]
     Indication: PAIN
  2. GABAPENTIN [Suspect]
     Indication: PAIN
  3. CYCLOBENZAPRINE HCL [Suspect]
     Indication: PAIN
  4. CITALOPRAM HYDROBROMIDE [Concomitant]
  5. BUSPIRONE [Concomitant]
  6. QUETIAPINE FUMARATE [Concomitant]
  7. ETODOLAC [Concomitant]
  8. CARISOPRODOL [Concomitant]
  9. ZOCOR [Concomitant]

REACTIONS (1)
  - MENTAL STATUS CHANGES [None]
